FAERS Safety Report 10067550 (Version 1)
Quarter: 2014Q2

REPORT INFORMATION
  Report Type: Spontaneous
  Country: US (occurrence: None)
  Receive Date: 20140408
  Receipt Date: 20140408
  Transmission Date: 20141212
  Serious: Yes (Other)
  Sender: FDA-Public Use
  Company Number: None

PATIENT
  Age: 53 Year
  Sex: Male

DRUGS (1)
  1. VIRAMUNE [Suspect]
     Indication: ILL-DEFINED DISORDER
     Route: 048
     Dates: start: 20140204, end: 20140214

REACTIONS (1)
  - Drug hypersensitivity [None]
